FAERS Safety Report 14560472 (Version 2)
Quarter: 2018Q1

REPORT INFORMATION
  Report Type: Spontaneous
  Country: GB (occurrence: GB)
  Receive Date: 20180222
  Receipt Date: 20180302
  Transmission Date: 20180509
  Serious: Yes (Death, Other)
  Sender: FDA-Public Use
  Company Number: GB-009507513-1802GBR008622

PATIENT
  Age: 86 Year
  Sex: Male

DRUGS (1)
  1. FINASTERIDE. [Suspect]
     Active Substance: FINASTERIDE
     Dosage: 1 DF, UNK
     Route: 048

REACTIONS (2)
  - Gastrointestinal perforation [Fatal]
  - Drug administration error [Unknown]
